FAERS Safety Report 14503233 (Version 2)
Quarter: 2018Q1

REPORT INFORMATION
  Report Type: Spontaneous
  Country: GB (occurrence: GB)
  Receive Date: 20180208
  Receipt Date: 20180214
  Transmission Date: 20180509
  Serious: Yes (Death)
  Sender: FDA-Public Use
  Company Number: GB-ASTRAZENECA-2018SE15853

PATIENT

DRUGS (1)
  1. NALOXEGOL [Suspect]
     Active Substance: NALOXEGOL
     Indication: CONSTIPATION
     Route: 048

REACTIONS (2)
  - Product use issue [Unknown]
  - Intestinal perforation [Fatal]
